FAERS Safety Report 5584002-8 (Version None)
Quarter: 2008Q1

REPORT INFORMATION
  Report Type: 
  Country: None (occurrence: None)
  Receive Date: 20080103
  Receipt Date: 20080103
  Transmission Date: 20080703
  Serious: Yes (Hospitalization, Other)
  Sender: FDA-Public Use
  Company Number: None

PATIENT
  Age: 70 Year
  Sex: Male

DRUGS (2)
  1. AMIODARONE HCL [Suspect]
     Indication: VENTRICULAR TACHYCARDIA
     Dosage: 400MG BID PO
     Route: 048
  2. BISOPROLOL 2.5MG [Suspect]
     Indication: VENTRICULAR TACHYCARDIA
     Dosage: 2.5MG DAILY PO
     Route: 048

REACTIONS (6)
  - ACUTE RESPIRATORY FAILURE [None]
  - BRADYCARDIA [None]
  - HYPOTENSION [None]
  - NODAL RHYTHM [None]
  - PNEUMONIA [None]
  - VENTRICULAR TACHYCARDIA [None]
